FAERS Safety Report 11809953 (Version 2)
Quarter: 2015Q4

REPORT INFORMATION
  Report Type: Report from Study
  Country: BR (occurrence: BR)
  Receive Date: 20151208
  Receipt Date: 20151223
  Transmission Date: 20160305
  Serious: Yes (Life-Threatening)
  Sender: FDA-Public Use
  Company Number: PHHY2015BR158709

PATIENT
  Sex: Female
  Weight: 90 kg

DRUGS (3)
  1. FORASEQ [Suspect]
     Active Substance: BUDESONIDE\FORMOTEROL FUMARATE
     Indication: EMPHYSEMA
     Dosage: 1 DF, QD
     Route: 055
  2. LOSARTAN. [Concomitant]
     Active Substance: LOSARTAN
     Indication: HYPERTENSION
     Dosage: 1 DF, QD
     Route: 048
  3. BUDESONIDE. [Concomitant]
     Active Substance: BUDESONIDE
     Indication: EMPHYSEMA
     Dosage: UNK
     Route: 065

REACTIONS (12)
  - Fear [Unknown]
  - Syncope [Unknown]
  - Asthenopia [Unknown]
  - Blood pressure increased [Unknown]
  - Labyrinthitis [Unknown]
  - Skin discolouration [Unknown]
  - Feeling abnormal [Unknown]
  - Dizziness [Unknown]
  - Fall [Unknown]
  - Expired product administered [Unknown]
  - Movement disorder [Unknown]
  - Apparent death [Unknown]
